FAERS Safety Report 15378632 (Version 1)
Quarter: 2018Q3

REPORT INFORMATION
  Report Type: Report from Study
  Country: US (occurrence: US)
  Receive Date: 20180913
  Receipt Date: 20180913
  Transmission Date: 20181010
  Serious: Yes (Hospitalization)
  Sender: FDA-Public Use
  Company Number: US-BAYER-2018-171411

PATIENT
  Sex: Male
  Weight: 70.3 kg

DRUGS (3)
  1. ADEMPAS [Suspect]
     Active Substance: RIOCIGUAT
     Indication: PULMONARY ARTERIAL HYPERTENSION
     Dosage: 2.5 MG, TID
     Route: 048
  2. ADEMPAS [Suspect]
     Active Substance: RIOCIGUAT
     Indication: PULMONARY ARTERIAL HYPERTENSION
     Dosage: UNK
     Dates: start: 20171108
  3. XARELTO [Concomitant]
     Active Substance: RIVAROXABAN
     Dosage: UNK

REACTIONS (11)
  - Constipation [None]
  - Cough [None]
  - Dyspnoea exertional [None]
  - Weight decreased [None]
  - Pallor [None]
  - Oedema peripheral [None]
  - Fatigue [None]
  - Hospitalisation [None]
  - Asthenia [Unknown]
  - Haemoglobin decreased [None]
  - Decreased appetite [None]
